FAERS Safety Report 11081243 (Version 1)
Quarter: 2015Q2

REPORT INFORMATION
  Report Type: Spontaneous
  Country: US (occurrence: US)
  Receive Date: 20150501
  Receipt Date: 20150501
  Transmission Date: 20150821
  Serious: No
  Sender: FDA-Public Use
  Company Number: US-ABBVIE-15P-163-1364034-00

PATIENT
  Sex: Male

DRUGS (1)
  1. CREON [Suspect]
     Active Substance: PANCRELIPASE AMYLASE\PANCRELIPASE LIPASE\PANCRELIPASE PROTEASE
     Indication: PANCREATITIS
     Dosage: 2 PER MEAL
     Route: 065
     Dates: start: 201408, end: 201502

REACTIONS (2)
  - Weight increased [Unknown]
  - Diarrhoea [Unknown]

NARRATIVE: CASE EVENT DATE: 2015
